FAERS Safety Report 8807158 (Version 1)
Quarter: 2012Q4

REPORT INFORMATION
  Report Type: 
  Country: US (occurrence: US)
  Receive Date: 20120925
  Receipt Date: 20120925
  Transmission Date: 20130627
  Serious: No
  Sender: FDA-Public Use
  Company Number: US-ASTRAZENECA-2012SE71161

PATIENT
  Age: 72 Year
  Sex: Female
  Weight: 90.7 kg

DRUGS (8)
  1. NEXIUM [Suspect]
     Indication: GASTROOESOPHAGEAL REFLUX DISEASE
     Dosage: DAILY
     Route: 048
     Dates: start: 201207
  2. SYNTHROID [Concomitant]
     Indication: THYROID DISORDER
  3. HYDROCHLOROTHIAZIDE [Concomitant]
     Indication: BLOOD PRESSURE
  4. CRESTOR [Concomitant]
     Indication: BLOOD CHOLESTEROL INCREASED
  5. LEXAPRO [Concomitant]
     Indication: DEPRESSION
  6. DIAZEPAM [Concomitant]
     Indication: ANXIETY
  7. VALTREX [Concomitant]
     Indication: HERPES ZOSTER
  8. VIVELLE [Concomitant]
     Indication: BLADDER DISORDER

REACTIONS (3)
  - Pruritus generalised [Unknown]
  - Dyspnoea [Unknown]
  - Off label use [Unknown]
